FAERS Safety Report 19881074 (Version 1)
Quarter: 2021Q3

REPORT INFORMATION
  Report Type: Report from Study
  Country: ES (occurrence: ES)
  Receive Date: 20210924
  Receipt Date: 20210924
  Transmission Date: 20211014
  Serious: Yes (Hospitalization)
  Sender: FDA-Public Use
  Company Number: ES-TEVA-2021-ES-1956517

PATIENT
  Age: 56 Year
  Sex: Female

DRUGS (1)
  1. ALPRAZOLAM (99A) [Suspect]
     Active Substance: ALPRAZOLAM
     Indication: ANXIETY
     Dosage: 2MILLIGRAM
     Route: 048
     Dates: start: 20200120, end: 20200502

REACTIONS (2)
  - Depressed level of consciousness [Recovered/Resolved]
  - Respiratory acidosis [Recovered/Resolved]

NARRATIVE: CASE EVENT DATE: 20200502
